FAERS Safety Report 10081224 (Version 1)
Quarter: 2014Q2

REPORT INFORMATION
  Report Type: Spontaneous
  Country: US (occurrence: US)
  Receive Date: 20140416
  Receipt Date: 20140416
  Transmission Date: 20141212
  Serious: No
  Sender: FDA-Public Use
  Company Number: US-PFIZER INC-2014103807

PATIENT
  Age: 79 Year
  Sex: Female
  Weight: 54.4 kg

DRUGS (1)
  1. HALCION [Suspect]
     Indication: SLEEP DISORDER
     Dosage: 0.25 MG , DAILY AT NIGHT

REACTIONS (1)
  - Intraocular pressure increased [Not Recovered/Not Resolved]
